FAERS Safety Report 17982285 (Version 2)
Quarter: 2021Q3

REPORT INFORMATION
  Report Type: Spontaneous
  Country: US (occurrence: US)
  Receive Date: 20200706
  Receipt Date: 20210824
  Transmission Date: 20211014
  Serious: Yes (Other)
  Sender: FDA-Public Use
  Company Number: US-SA-2020SA171376

PATIENT
  Age: 62 Year
  Sex: Male

DRUGS (2)
  1. ZANTAC [Suspect]
     Active Substance: RANITIDINE HYDROCHLORIDE
     Indication: DYSPEPSIA
  2. ZANTAC [Suspect]
     Active Substance: RANITIDINE HYDROCHLORIDE
     Indication: GASTROOESOPHAGEAL REFLUX DISEASE
     Dosage: 150 MG, QW
     Dates: start: 198001, end: 202003

REACTIONS (4)
  - Renal cancer stage IV [Unknown]
  - Colorectal cancer stage III [Unknown]
  - Bone cancer [Unknown]
  - Lung carcinoma cell type unspecified stage III [Unknown]

NARRATIVE: CASE EVENT DATE: 20100101
